FAERS Safety Report 23389391 (Version 3)
Quarter: 2024Q2

REPORT INFORMATION
  Report Type: Report from Study
  Country: US (occurrence: US)
  Receive Date: 20240110
  Receipt Date: 20240518
  Transmission Date: 20240716
  Serious: Yes (Hospitalization, Other)
  Sender: FDA-Public Use
  Company Number: US-ABBVIE-5579733

PATIENT
  Age: 62 Year
  Sex: Female

DRUGS (1)
  1. HUMIRA [Suspect]
     Active Substance: ADALIMUMAB
     Indication: Rheumatoid arthritis
     Dosage: FORM STRENGTH: 40 MG
     Route: 058
     Dates: start: 20160828

REACTIONS (8)
  - Injury [Unknown]
  - Fall [Recovering/Resolving]
  - Vertigo [Not Recovered/Not Resolved]
  - Rib fracture [Recovering/Resolving]
  - Thoracic vertebral fracture [Recovering/Resolving]
  - Head injury [Unknown]
  - Lumbar vertebral fracture [Recovering/Resolving]
  - Fall [Unknown]

NARRATIVE: CASE EVENT DATE: 20221201
